FAERS Safety Report 22184401 (Version 1)
Quarter: 2023Q2

REPORT INFORMATION
  Report Type: Spontaneous
  Country: DE (occurrence: DE)
  Receive Date: 20230407
  Receipt Date: 20230407
  Transmission Date: 20230721
  Serious: Yes (Other)
  Sender: FDA-Public Use
  Company Number: DE-AMGEN-DEUSL2023045210

PATIENT
  Age: 52 Year
  Sex: Female

DRUGS (2)
  1. OXYCODONE [Suspect]
     Active Substance: OXYCODONE
     Indication: Neuropathy peripheral
     Dosage: 30 MILLIGRAM, ONCE A DAY,(10 MILLIGRAM, Q8H)
     Route: 065
  2. ADALIMUMAB [Suspect]
     Active Substance: ADALIMUMAB
     Indication: Psoriatic arthropathy
     Dosage: UNK, Q2WK
     Route: 065
     Dates: start: 20230123, end: 20230303

REACTIONS (3)
  - Neuropathy peripheral [Unknown]
  - Pain in extremity [Unknown]
  - Drug interaction [Unknown]

NARRATIVE: CASE EVENT DATE: 20230312
